FAERS Safety Report 18596731 (Version 5)
Quarter: 2021Q2

REPORT INFORMATION
  Report Type: Report from Study
  Country: DE (occurrence: DE)
  Receive Date: 20201209
  Receipt Date: 20210608
  Transmission Date: 20210717
  Serious: Yes (Life-Threatening, Hospitalization, Other)
  Sender: FDA-Public Use
  Company Number: DE-TAKEDA-2020TUS054335

PATIENT
  Age: 2 Year
  Sex: Male

DRUGS (8)
  1. MEROPENEM. [Concomitant]
     Active Substance: MEROPENEM
     Indication: ACINETOBACTER SEPSIS
     Dosage: 200 MILLIGRAM, TID
     Route: 042
     Dates: start: 20201002, end: 20201012
  2. VANCOMYCIN [Concomitant]
     Active Substance: VANCOMYCIN
     Indication: ACINETOBACTER SEPSIS
     Dosage: 120 MILLIGRAM, QD
     Route: 042
     Dates: start: 20201013, end: 20201013
  3. TEDUGLUTIDE [Suspect]
     Active Substance: TEDUGLUTIDE
     Indication: SHORT-BOWEL SYNDROME
     Dosage: 0.5 MILLIGRAM (TED DOSES PER 0.0500 MG/KG, TED DOSES PER WEEK 7)
     Route: 065
     Dates: start: 20201015
  4. TEDUGLUTIDE [Suspect]
     Active Substance: TEDUGLUTIDE
     Indication: SHORT-BOWEL SYNDROME
     Dosage: 0.5 MILLIGRAM (TED DOSES PER 0.0500 MG/KG, TED DOSES PER WEEK 7)
     Route: 065
     Dates: start: 20201015
  5. MEROPENEM. [Concomitant]
     Active Substance: MEROPENEM
     Dosage: 200 MILLIGRAM, QD
     Route: 042
     Dates: start: 20201014, end: 20201014
  6. MEROPENEM. [Concomitant]
     Active Substance: MEROPENEM
     Dosage: 200 MILLIGRAM, QID
     Route: 042
     Dates: start: 20201013, end: 20201013
  7. TEDUGLUTIDE [Suspect]
     Active Substance: TEDUGLUTIDE
     Indication: SHORT-BOWEL SYNDROME
     Dosage: 0.5 MILLIGRAM (TED DOSES PER 0.0500 MG/KG, TED DOSES PER WEEK 7)
     Route: 065
     Dates: start: 20201015
  8. TEDUGLUTIDE [Suspect]
     Active Substance: TEDUGLUTIDE
     Indication: SHORT-BOWEL SYNDROME
     Dosage: 0.5 MILLIGRAM (TED DOSES PER 0.0500 MG/KG, TED DOSES PER WEEK 7)
     Route: 065
     Dates: start: 20201015

REACTIONS (6)
  - Pyrexia [Unknown]
  - Gastrointestinal haemorrhage [Unknown]
  - Multiple organ dysfunction syndrome [Unknown]
  - Device dislocation [Recovered/Resolved]
  - Device related sepsis [Unknown]
  - Urinary bladder haemorrhage [Not Recovered/Not Resolved]

NARRATIVE: CASE EVENT DATE: 20201126
